FAERS Safety Report 15969203 (Version 2)
Quarter: 2019Q1

REPORT INFORMATION
  Report Type: Spontaneous
  Country: US (occurrence: US)
  Receive Date: 20190215
  Receipt Date: 20190329
  Transmission Date: 20190418
  Serious: Yes (Other)
  Sender: FDA-Public Use
  Company Number: US-PFIZER INC-2019069531

PATIENT
  Age: 58 Year
  Sex: Female

DRUGS (1)
  1. XELJANZ XR [Suspect]
     Active Substance: TOFACITINIB CITRATE
     Indication: RHEUMATOID ARTHRITIS
     Dosage: 11 MG, DAILY (WITH OR WITHOUT FOOD SWALLOW WHOLE DO NOT CRUSH, SPLIT OR CHEW)
     Route: 048
     Dates: start: 2016

REACTIONS (2)
  - Limb injury [Recovering/Resolving]
  - Condition aggravated [Recovering/Resolving]
